FAERS Safety Report 23217989 (Version 1)
Quarter: 2023Q4

REPORT INFORMATION
  Report Type: Spontaneous
  Country: US (occurrence: None)
  Receive Date: 20231121
  Receipt Date: 20231121
  Transmission Date: 20240110
  Serious: Yes (Hospitalization)
  Sender: FDA-Public Use
  Company Number: None

PATIENT
  Sex: Female

DRUGS (4)
  1. SILDENAFIL CITRATE [Suspect]
     Active Substance: SILDENAFIL CITRATE
     Indication: Pulmonary arterial hypertension
     Dosage: 40MG TID PO?
     Route: 048
     Dates: start: 202202
  2. REMODULIN [Suspect]
     Active Substance: TREPROSTINIL
  3. OPSUMIT [Concomitant]
     Active Substance: MACITENTAN
  4. REMODULIN  MDV [Concomitant]

REACTIONS (1)
  - Condition aggravated [None]

NARRATIVE: CASE EVENT DATE: 20231120
